FAERS Safety Report 19384504 (Version 2)
Quarter: 2021Q2

REPORT INFORMATION
  Report Type: Spontaneous
  Country: BR (occurrence: BR)
  Receive Date: 20210607
  Receipt Date: 20210623
  Transmission Date: 20210717
  Serious: Yes (Life-Threatening, Other)
  Sender: FDA-Public Use
  Company Number: BR-MALLINCKRODT PHARMACEUTICALS-T202102462

PATIENT
  Age: 63 Year
  Sex: Male
  Weight: 110 kg

DRUGS (5)
  1. UVADEX [Suspect]
     Active Substance: METHOXSALEN
     Indication: CUTANEOUS T-CELL LYMPHOMA
     Dosage: UNK (EXTRACORPOREAL)
     Route: 050
     Dates: start: 202010
  2. INTERFERON [Concomitant]
     Active Substance: INTERFERON
     Indication: PRODUCT USED FOR UNKNOWN INDICATION
     Dosage: PROGRESSIVE DOSE
  3. HEPARIN [Concomitant]
     Active Substance: HEPARIN SODIUM
     Indication: ANTICOAGULANT THERAPY
     Dosage: 10UI IN SALINE 500 ML, A/C  RATIO 10:1
     Route: 065
  4. PREDNISONE. [Concomitant]
     Active Substance: PREDNISONE
     Indication: PRODUCT USED FOR UNKNOWN INDICATION
     Dosage: UNK, LOW DOSE
     Route: 065
  5. VERAPAMIL [Concomitant]
     Active Substance: VERAPAMIL HYDROCHLORIDE
     Indication: PRODUCT USED FOR UNKNOWN INDICATION
     Dosage: UNK
     Route: 065

REACTIONS (9)
  - Acute myocardial infarction [Unknown]
  - Confusional state [Unknown]
  - Generalised tonic-clonic seizure [Unknown]
  - Vascular device infection [Unknown]
  - Haemoglobin decreased [Unknown]
  - Septic shock [Unknown]
  - Vasoplegia syndrome [Unknown]
  - Dyspnoea exertional [Unknown]
  - Gram stain positive [Unknown]

NARRATIVE: CASE EVENT DATE: 20210528
